FAERS Safety Report 14310419 (Version 1)
Quarter: 2017Q4

REPORT INFORMATION
  Report Type: Spontaneous
  Country: US (occurrence: US)
  Receive Date: 20171220
  Receipt Date: 20171220
  Transmission Date: 20180321
  Serious: Yes (Hospitalization)
  Sender: FDA-Public Use
  Company Number: None

PATIENT
  Age: 83 Year
  Sex: Female
  Weight: 54.9 kg

DRUGS (7)
  1. ACETAMINOPHEN. [Concomitant]
     Active Substance: ACETAMINOPHEN
  2. TUMS [Concomitant]
     Active Substance: CALCIUM CARBONATE
  3. METOPROLOL. [Concomitant]
     Active Substance: METOPROLOL
  4. FASLODEX [Concomitant]
     Active Substance: FULVESTRANT
  5. MOTRIN [Concomitant]
     Active Substance: IBUPROFEN
  6. IBRANCE [Suspect]
     Active Substance: PALBOCICLIB
     Indication: BREAST CANCER
     Route: 048
     Dates: start: 20170920
  7. LORAZEPAM. [Concomitant]
     Active Substance: LORAZEPAM

REACTIONS (2)
  - Haemorrhage [None]
  - Metastatic neoplasm [None]

NARRATIVE: CASE EVENT DATE: 20171215
